FAERS Safety Report 16656295 (Version 1)
Quarter: 2019Q3

REPORT INFORMATION
  Report Type: Spontaneous
  Country: US (occurrence: US)
  Receive Date: 20190801
  Receipt Date: 20190801
  Transmission Date: 20191004
  Serious: No
  Sender: FDA-Public Use
  Company Number: US-PACIRA-201500006

PATIENT
  Sex: Female

DRUGS (8)
  1. VERSED [Concomitant]
     Active Substance: MIDAZOLAM HYDROCHLORIDE
     Dosage: UNK UNK, UNK, FREQUENCY : UNK
     Route: 065
     Dates: start: 20150831
  2. PROPOFOL. [Concomitant]
     Active Substance: PROPOFOL
     Dosage: UNK UNK, UNK, FREQUENCY : UNK
     Route: 065
     Dates: start: 20150831
  3. ROBAXIN [Concomitant]
     Active Substance: METHOCARBAMOL
     Dosage: UNK UNK, UNK, FREQUENCY : UNK
     Route: 065
     Dates: start: 20150831
  4. DILAUDID [Concomitant]
     Active Substance: HYDROMORPHONE HYDROCHLORIDE
     Dosage: UNK UNK, UNK, FREQUENCY : UNK
     Route: 065
     Dates: start: 20150831
  5. SEVOFLURANE. [Concomitant]
     Active Substance: SEVOFLURANE
     Dosage: UNK UNK, UNK, FREQUENCY : UNK
     Route: 065
     Dates: start: 20150831
  6. CELEBREX [Concomitant]
     Active Substance: CELECOXIB
     Dosage: UNK UNK, UNK, FREQUENCY : UNK
     Route: 065
     Dates: start: 20150831
  7. EXPAREL [Suspect]
     Active Substance: BUPIVACAINE
     Indication: POSTOPERATIVE ANALGESIA
     Dosage: UNK UNK, UNK ^WHATEVER THAT MAX DOSE WAS^, FREQUENCY : UNK
     Route: 065
  8. ZOFRAN [Concomitant]
     Active Substance: ONDANSETRON HYDROCHLORIDE
     Dosage: UNK UNK, UNK, FREQUENCY : UNK
     Route: 065
     Dates: start: 20150831

REACTIONS (2)
  - Drug ineffective [Recovering/Resolving]
  - Procedural pain [Recovering/Resolving]

NARRATIVE: CASE EVENT DATE: 20150901
